FAERS Safety Report 24847361 (Version 1)
Quarter: 2025Q1

REPORT INFORMATION
  Report Type: Report from Study
  Country: CA (occurrence: CA)
  Receive Date: 20250116
  Receipt Date: 20250116
  Transmission Date: 20250408
  Serious: Yes (Other)
  Sender: ROCHE
  Company Number: CA-002147023-NVSC2024CA215480

PATIENT
  Age: 9 Year
  Sex: Female

DRUGS (2)
  1. XOLAIR [Suspect]
     Active Substance: OMALIZUMAB
     Indication: Asthma
     Dosage: 300 MG, BIW
     Route: 050
     Dates: start: 20241101
  2. XOLAIR [Suspect]
     Active Substance: OMALIZUMAB
     Route: 058
     Dates: start: 20241104

REACTIONS (9)
  - Oxygen saturation decreased [Recovering/Resolving]
  - Nausea [Unknown]
  - Vision blurred [Recovering/Resolving]
  - Influenza like illness [Unknown]
  - Wheezing [Unknown]
  - Pallor [Unknown]
  - Cold sweat [Unknown]
  - Fatigue [Unknown]
  - Anaphylactic reaction [Unknown]

NARRATIVE: CASE EVENT DATE: 20241101
